FAERS Safety Report 8765983 (Version 2)
Quarter: 2013Q1

REPORT INFORMATION
  Report Type: Spontaneous
  Country: US (occurrence: US)
  Receive Date: 20120904
  Receipt Date: 20130206
  Transmission Date: 20140127
  Serious: Yes (Life-Threatening, Hospitalization)
  Sender: FDA-Public Use
  Company Number: US-009507513-2012SP013731

PATIENT
  Age: 54 Year
  Sex: Male
  Weight: 69.84 kg

DRUGS (13)
  1. VICTRELIS [Suspect]
     Indication: HEPATITIS C
     Dosage: 200 MG, TID
     Dates: start: 201111, end: 20120309
  2. PEGINTRON [Suspect]
     Indication: HEPATITIS C
     Dosage: 96 MICROGRAM, QW
     Route: 058
     Dates: end: 20120309
  3. RIBAPAK [Suspect]
     Indication: HEPATITIS C
     Dosage: 1000 MG, QD; 400 AM, 600 PM
     Dates: end: 20120309
  4. AMLODIPINE [Concomitant]
     Dosage: 2.5 MG, QD
     Route: 048
  5. VITAMINS (UNSPECIFIED) [Concomitant]
  6. VITAMIN D (UNSPECIFIED) [Concomitant]
  7. METFORMIN [Concomitant]
     Dosage: 500 MG, BID
     Route: 048
  8. CELEXA [Concomitant]
     Dosage: 20 MG, QAM
  9. GLIPIZIDE [Concomitant]
     Dosage: 5 MG, QD
  10. LISINOPRIL [Concomitant]
     Dosage: 10 MG, QD
     Route: 048
  11. ZOLOFT [Concomitant]
     Dosage: 100 MG, QPM
     Route: 048
  12. INSULIN GLARGINE [Concomitant]
     Dosage: 10 UNITS, QPM
     Route: 058
  13. ABILIFY [Concomitant]
     Dosage: 20 MG, QPM
     Route: 048

REACTIONS (13)
  - Suicidal ideation [Recovered/Resolved]
  - Underdose [Unknown]
  - Confusional state [Unknown]
  - Depression [Recovered/Resolved]
  - Agitation [Unknown]
  - Insomnia [Recovered/Resolved]
  - Eating disorder [Recovered/Resolved]
  - Paranoid personality disorder [Unknown]
  - Memory impairment [Unknown]
  - Hypervigilance [Unknown]
  - Suicidal ideation [Unknown]
  - Confusional state [Unknown]
  - Depression [Unknown]
